FAERS Safety Report 7531311-9 (Version None)
Quarter: 2011Q2

REPORT INFORMATION
  Report Type: 
  Country: None (occurrence: None)
  Receive Date: 20110531
  Receipt Date: 20110519
  Transmission Date: 20111010
  Serious: Yes (Other)
  Sender: FDA-Public Use
  Company Number: 1000021050

PATIENT
  Age: 66 Year
  Sex: Female

DRUGS (2)
  1. MILNACIPRAN (MILNACIPRAN HYDROCHLORIDE) [Suspect]
     Indication: HYPOAESTHESIA
     Dosage: (15 MG,ONCE)
  2. GABAPENTIN [Suspect]
     Indication: HYPOAESTHESIA
     Dosage: 400 MG (400 MG,1 IN 1 D)

REACTIONS (7)
  - OEDEMA PERIPHERAL [None]
  - NEUROMYOPATHY [None]
  - DRUG INEFFECTIVE [None]
  - GAIT DISTURBANCE [None]
  - SENSORY DISTURBANCE [None]
  - HYPOAESTHESIA [None]
  - MUSCULOSKELETAL STIFFNESS [None]
